FAERS Safety Report 10161101 (Version 2)
Quarter: 2014Q2

REPORT INFORMATION
  Report Type: Spontaneous
  Country: US (occurrence: US)
  Receive Date: 20140508
  Receipt Date: 20140516
  Transmission Date: 20141212
  Serious: No
  Sender: FDA-Public Use
  Company Number: US-PFIZER INC-2014123461

PATIENT
  Age: 65 Year
  Sex: Male
  Weight: 75.74 kg

DRUGS (5)
  1. VIAGRA [Suspect]
     Indication: ERECTILE DYSFUNCTION
     Dosage: 50 MG, DAILY
     Dates: start: 201310
  2. VIAGRA [Suspect]
     Dosage: 100 MG, DAILY
  3. ATENOLOL [Concomitant]
     Indication: BLOOD PRESSURE ABNORMAL
     Dosage: 50 MG, DAILY
  4. TYLENOL [Concomitant]
     Indication: PAIN
     Dosage: UNK
  5. HYDROCODONE [Concomitant]
     Indication: PAIN
     Dosage: UNK

REACTIONS (1)
  - Drug ineffective [Unknown]
